FAERS Safety Report 5678776-5 (Version None)
Quarter: 2008Q1

REPORT INFORMATION
  Report Type: 
  Country: None (occurrence: None)
  Receive Date: 20080321
  Receipt Date: 20080310
  Transmission Date: 20080703
  Serious: Yes (Other)
  Sender: FDA-Public Use
  Company Number: FABR-1000138

PATIENT
  Age: 46 Year

DRUGS (3)
  1. FABRAZYME [Suspect]
     Indication: FABRY'S DISEASE
     Dosage: 1 MG/KG, Q2W, INTRAVENOUS
     Route: 042
  2. ACE INHIBITOR NOS [Concomitant]
  3. ARB (CANDESARTAN CILEXETIL) [Concomitant]

REACTIONS (1)
  - ATRIAL FIBRILLATION [None]
